FAERS Safety Report 10618715 (Version 2)
Quarter: 2015Q1

REPORT INFORMATION
  Report Type: Spontaneous
  Country: CA (occurrence: CA)
  Receive Date: 20141202
  Receipt Date: 20150119
  Transmission Date: 20150720
  Serious: Yes (Other)
  Sender: FDA-Public Use
  Company Number: CA-SA-2014SA162125

PATIENT
  Age: 82 Year
  Sex: Male
  Weight: 49 kg

DRUGS (20)
  1. LANTUS [Suspect]
     Active Substance: INSULIN GLARGINE
     Dosage: FORM: SOLUTION SUBCUTANEOUS
     Route: 065
  2. RIVOTRIL [Concomitant]
     Active Substance: CLONAZEPAM
     Indication: SLEEP DISORDER
  3. SPIRONOLACTONE. [Concomitant]
     Active Substance: SPIRONOLACTONE
     Dosage: 100MG TABLET, 1 TABLET EVERY MORNING
  4. BISOPROLOL FUMARATE. [Concomitant]
     Active Substance: BISOPROLOL FUMARATE
     Dosage: 5 MG TAB, TAKE 0.5MG B.I.D
  5. JANUVIA [Concomitant]
     Active Substance: SITAGLIPTIN PHOSPHATE
     Route: 048
  6. VITAMIN D [Concomitant]
     Active Substance: CHOLECALCIFEROL
  7. ZAROXOLYN [Concomitant]
     Active Substance: METOLAZONE
     Dosage: 2.5 MG TAB, 1 TAB AT BREAKFAST AND LUNCH FOR FLUID
  8. DIGOXIN. [Concomitant]
     Active Substance: DIGOXIN
     Indication: ARRHYTHMIA PROPHYLAXIS
     Dosage: AT BREAKFAST
  9. KEFLEX [Concomitant]
     Active Substance: CEPHALEXIN
     Dosage: 1 TAB AT BREAKFAST QID FOR 10DAYS
     Route: 048
  10. LASIX [Concomitant]
     Active Substance: FUROSEMIDE
     Indication: CARDIOVASCULAR EVENT PROPHYLAXIS
     Dosage: 40MG TABLET (1 TAB IN AM)
  11. RIVOTRIL [Concomitant]
     Active Substance: CLONAZEPAM
     Indication: RESTLESS LEGS SYNDROME
  12. AZOPT [Concomitant]
     Active Substance: BRINZOLAMIDE
     Dosage: SUSPENSION OPTHALMIC,?ONE DROP TO EACH EYE B.I.D
  13. IMODIUM [Concomitant]
     Active Substance: LOPERAMIDE HYDROCHLORIDE
     Indication: DIARRHOEA
     Dosage: 1 TAB EVERY 6 HOURS, P.R.N
  14. LOSEC [Concomitant]
     Active Substance: OMEPRAZOLE
     Indication: PROPHYLAXIS
  15. SYNTHROID [Concomitant]
     Active Substance: LEVOTHYROXINE SODIUM
     Indication: THYROID HORMONE REPLACEMENT THERAPY
  16. GLICLAZIDE [Concomitant]
     Active Substance: GLICLAZIDE
     Indication: DIABETES MELLITUS
     Dosage: 3 TABLETS ONCE PER DAY
  17. LANTUS [Suspect]
     Active Substance: INSULIN GLARGINE
     Dosage: FORM- SOLUTION SUBCUTANEOUS DOSE:10 UNIT(S)
     Route: 058
     Dates: start: 20140326, end: 20140408
  18. RAMIPRIL. [Concomitant]
     Active Substance: RAMIPRIL
     Indication: ATRIAL FIBRILLATION
  19. COUMADIN [Concomitant]
     Active Substance: WARFARIN SODIUM
     Indication: ANTICOAGULANT THERAPY
  20. LIPITOR [Concomitant]
     Active Substance: ATORVASTATIN CALCIUM
     Indication: BLOOD CHOLESTEROL

REACTIONS (4)
  - Activities of daily living impaired [Recovered/Resolved]
  - Blood glucose decreased [Recovering/Resolving]
  - Nausea [Recovered/Resolved]
  - Diarrhoea [Recovered/Resolved]

NARRATIVE: CASE EVENT DATE: 20140327
